FAERS Safety Report 19783179 (Version 1)
Quarter: 2021Q3

REPORT INFORMATION
  Report Type: Spontaneous
  Country: US (occurrence: US)
  Receive Date: 20210902
  Receipt Date: 20210902
  Transmission Date: 20211014
  Serious: Yes (Other)
  Sender: FDA-Public Use
  Company Number: US-GILEAD-2021-0546663

PATIENT
  Age: 56 Year
  Sex: Male
  Weight: 173.3 kg

DRUGS (1)
  1. YESCARTA [Suspect]
     Active Substance: AXICABTAGENE CILOLEUCEL
     Indication: MARGINAL ZONE LYMPHOMA
     Dosage: UNK, ONCE
     Route: 042
     Dates: start: 20210527, end: 20210527

REACTIONS (15)
  - Confusional state [Unknown]
  - Aspartate aminotransferase increased [Unknown]
  - Alanine aminotransferase increased [Unknown]
  - Disorientation [Unknown]
  - Loss of consciousness [Unknown]
  - Immune effector cell-associated neurotoxicity syndrome [Recovered/Resolved]
  - Agitation [Unknown]
  - Incontinence [Unknown]
  - Tremor [Unknown]
  - Fatigue [Unknown]
  - Hyperbilirubinaemia [Unknown]
  - Cytokine release syndrome [Unknown]
  - Headache [Unknown]
  - Chills [Unknown]
  - Aphasia [Unknown]

NARRATIVE: CASE EVENT DATE: 20210529
